FAERS Safety Report 6431593-0 (Version None)
Quarter: 2009Q4

REPORT INFORMATION
  Report Type: 
  Country: None (occurrence: None)
  Receive Date: 20091106
  Receipt Date: 20091012
  Transmission Date: 20100525
  Serious: Yes (Other)
  Sender: FDA-Public Use
  Company Number: BR-AMGEN-US372711

PATIENT
  Sex: Male
  Weight: 47 kg

DRUGS (1)
  1. GRANULOKINE [Suspect]
     Indication: NEUTROPENIA
     Route: 058
     Dates: start: 20020101, end: 20090927

REACTIONS (1)
  - NEUTROPHIL COUNT DECREASED [None]
